FAERS Safety Report 6042547-0 (Version None)
Quarter: 2009Q1

REPORT INFORMATION
  Report Type: 
  Country: None (occurrence: None)
  Receive Date: 20090119
  Receipt Date: 20090109
  Transmission Date: 20090719
  Serious: Yes (Hospitalization)
  Sender: FDA-Public Use
  Company Number: JP-SP-2009-00103

PATIENT
  Age: 93 Year
  Sex: Female

DRUGS (1)
  1. IMMUCYST [Suspect]
     Indication: BLADDER CANCER
     Route: 043
     Dates: start: 20081215

REACTIONS (2)
  - HAEMATURIA [None]
  - URGE INCONTINENCE [None]
